FAERS Safety Report 4427364-7 (Version None)
Quarter: 2004Q3

REPORT INFORMATION
  Report Type: 
  Country: None (occurrence: None)
  Receive Date: 20040816
  Receipt Date: 20040816
  Transmission Date: 20050211
  Serious: No
  Sender: FDA-Public Use
  Company Number: None

PATIENT
  Age: 78 Year
  Sex: Female
  Weight: 77.5651 kg

DRUGS (3)
  1. PREDNISONE TAB [Suspect]
     Indication: PULMONARY CONGESTION
     Dosage: 2 TABS FOR 4 DAYS 4- TABS FOR 4 DAYS, 1 TAB 4 DAY
     Dates: start: 20040723, end: 20040808
  2. WARFARIN SODIUM [Suspect]
     Indication: ATRIAL FIBRILLATION
     Dosage: 5 MG 5X WK  2 1/2 -2X WK
     Dates: end: 20040301
  3. WARFARIN SODIUM [Suspect]
     Indication: CARDIAC FAILURE CONGESTIVE
     Dosage: 5 MG 5X WK  2 1/2 -2X WK
     Dates: end: 20040301

REACTIONS (2)
  - CONDITION AGGRAVATED [None]
  - PULMONARY CONGESTION [None]
